FAERS Safety Report 26006954 (Version 1)
Quarter: 2025Q4

REPORT INFORMATION
  Report Type: Spontaneous
  Country: US (occurrence: US)
  Receive Date: 20251106
  Receipt Date: 20251106
  Transmission Date: 20260118
  Serious: Yes (Other)
  Sender: Haleon PLC
  Company Number: US-HALEON-2272493

PATIENT
  Sex: Female

DRUGS (2)
  1. ALLI [Suspect]
     Active Substance: ORLISTAT
     Indication: Weight control
  2. ALLI [Suspect]
     Active Substance: ORLISTAT

REACTIONS (1)
  - Diverticulitis [Recovered/Resolved]
